FAERS Safety Report 5898910-1 (Version None)
Quarter: 2008Q3

REPORT INFORMATION
  Report Type: 
  Country: None (occurrence: None)
  Receive Date: 20080925
  Receipt Date: 20080916
  Transmission Date: 20090109
  Serious: Yes (Life-Threatening, Hospitalization)
  Sender: FDA-Public Use
  Company Number: US-ABBOTT-06P-163-0343731-00

PATIENT
  Sex: Male
  Weight: 75.82 kg

DRUGS (15)
  1. RITONAVIR SOFT GELATIN CAPSULES [Suspect]
     Indication: HIV INFECTION
     Route: 048
     Dates: start: 20060411, end: 20060806
  2. RITONAVIR SOFT GELATIN CAPSULES [Suspect]
     Route: 048
     Dates: start: 20060807, end: 20060807
  3. TMC114 [Concomitant]
     Indication: HIV INFECTION
     Route: 048
     Dates: start: 20060411, end: 20060806
  4. TMC114 [Concomitant]
     Route: 048
     Dates: start: 20060807, end: 20060807
  5. TRUVADA [Concomitant]
     Indication: HIV INFECTION
     Route: 048
     Dates: start: 20060411
  6. AZITHROMYCIN [Concomitant]
     Indication: PROPHYLAXIS
     Route: 048
  7. FLUCONAZOLE [Concomitant]
     Indication: CANDIDIASIS
     Route: 048
  8. VALCYTE [Concomitant]
     Indication: CYTOMEGALOVIRUS CHORIORETINITIS
     Route: 048
  9. FILGRASTIM [Concomitant]
     Indication: NEUTROPENIA
     Route: 042
  10. CENTRUM SILVER [Concomitant]
     Indication: MEDICAL DIET
     Route: 048
  11. ASCORBIC ACID [Concomitant]
     Indication: MEDICAL DIET
     Route: 048
  12. DARBEPOETIN ALFA [Concomitant]
     Indication: NEUTROPENIA
     Route: 058
  13. ATOVAQUONE [Concomitant]
     Indication: PNEUMOCYSTIS JIROVECI INFECTION
     Route: 048
     Dates: start: 20060623
  14. ENFUVIRTIDE [Concomitant]
     Indication: HIV INFECTION
     Route: 058
     Dates: start: 20060812
  15. VORICONAZOLE [Concomitant]
     Indication: ASPERGILLOSIS
     Route: 048
     Dates: start: 20060811

REACTIONS (5)
  - HAEMOPTYSIS [None]
  - MASS [None]
  - PLATELET COUNT DECREASED [None]
  - PULMONARY MASS [None]
  - PYREXIA [None]
